FAERS Safety Report 20849484 (Version 1)
Quarter: 2022Q2

REPORT INFORMATION
  Report Type: Spontaneous
  Country: JP (occurrence: JP)
  Receive Date: 20220519
  Receipt Date: 20220519
  Transmission Date: 20220721
  Serious: Yes (Death, Hospitalization, Other)
  Sender: FDA-Public Use
  Company Number: JP-SA-2022SA176580

PATIENT
  Age: 60 Year
  Sex: Female

DRUGS (2)
  1. KEVZARA [Suspect]
     Active Substance: SARILUMAB
     Indication: Rheumatoid arthritis
     Route: 058
  2. METHOTREXATE [Concomitant]
     Active Substance: METHOTREXATE
     Indication: Rheumatoid arthritis
     Route: 065

REACTIONS (13)
  - Pseudomonas infection [Fatal]
  - Haemorrhagic pneumonia [Fatal]
  - Septic shock [Fatal]
  - Multiple organ dysfunction syndrome [Fatal]
  - Haemoptysis [Fatal]
  - Painful respiration [Fatal]
  - Pyrexia [Fatal]
  - Vomiting [Fatal]
  - Malaise [Fatal]
  - Pneumonia [Fatal]
  - Pleurisy [Fatal]
  - Respiratory failure [Fatal]
  - Shock [Fatal]
